FAERS Safety Report 8295682-0 (Version None)
Quarter: 2012Q2

REPORT INFORMATION
  Report Type: 
  Country: None (occurrence: None)
  Receive Date: 20120416
  Receipt Date: 20120416
  Transmission Date: 20120825
  Serious: Yes (Other)
  Sender: FDA-Public Use
  Company Number: None

PATIENT
  Sex: Female

DRUGS (2)
  1. PEGASYS [Suspect]
     Dosage: 180MCG QWEEK SUBQ
     Route: 058
     Dates: start: 20120321
  2. RIBAVIRIN [Suspect]
     Dosage: 180MCG QWEEK SUBQ
     Route: 058
     Dates: start: 20120321

REACTIONS (3)
  - LOSS OF CONSCIOUSNESS [None]
  - CONTUSION [None]
  - FALL [None]
